FAERS Safety Report 6369032-0 (Version None)
Quarter: 2009Q3

REPORT INFORMATION
  Report Type: 
  Country: None (occurrence: None)
  Receive Date: 20090922
  Receipt Date: 20090910
  Transmission Date: 20100115
  Serious: Yes (Disabling, Other)
  Sender: FDA-Public Use
  Company Number: PHEH2009US10525

PATIENT
  Sex: Female

DRUGS (2)
  1. EXJADE [Suspect]
     Indication: ACUTE MONOCYTIC LEUKAEMIA
     Dosage: 1000 MG DAILY; DIVIDED DOSES
     Route: 048
     Dates: start: 20090318, end: 20090721
  2. EXJADE [Suspect]
     Indication: IRON OVERLOAD

REACTIONS (3)
  - DECREASED APPETITE [None]
  - FATIGUE [None]
  - MALIGNANT NEOPLASM PROGRESSION [None]
